FAERS Safety Report 6888588-2 (Version None)
Quarter: 2010Q3

REPORT INFORMATION
  Report Type: 
  Country: None (occurrence: None)
  Receive Date: 20100730
  Receipt Date: 20071003
  Transmission Date: 20110219
  Serious: No
  Sender: FDA-Public Use
  Company Number: US-PFIZER INC-2007083389

PATIENT
  Sex: Female
  Weight: 63.5 kg

DRUGS (3)
  1. LIPITOR [Suspect]
     Indication: BLOOD CHOLESTEROL INCREASED
     Dates: start: 19870101
  2. DRUG, UNSPECIFIED [Concomitant]
  3. CARDIOVASCULAR SYSTEM DRUGS [Concomitant]

REACTIONS (1)
  - MYALGIA [None]
